FAERS Safety Report 5783265-3 (Version None)
Quarter: 2008Q2

REPORT INFORMATION
  Report Type: 
  Country: None (occurrence: None)
  Receive Date: 20080605
  Receipt Date: 20080317
  Transmission Date: 20081010
  Serious: No
  Sender: FDA-Public Use
  Company Number: A0715232A

PATIENT

DRUGS (2)
  1. ALLI [Suspect]
     Indication: DRUG USE FOR UNKNOWN INDICATION
  2. VITAMIN [Concomitant]

REACTIONS (4)
  - DIZZINESS [None]
  - GASTROINTESTINAL DISORDER [None]
  - NAUSEA [None]
  - STOMACH DISCOMFORT [None]
